FAERS Safety Report 8496332-0 (Version None)
Quarter: 2012Q3

REPORT INFORMATION
  Report Type: 
  Country: None (occurrence: None)
  Receive Date: 20120709
  Receipt Date: 20120703
  Transmission Date: 20120928
  Serious: No
  Sender: FDA-Public Use
  Company Number: US-PFIZER INC-2012122529

PATIENT
  Sex: Male
  Weight: 79.4 kg

DRUGS (6)
  1. PHENYTOIN SODIUM [Suspect]
     Dosage: UNK
  2. DILANTIN [Suspect]
     Dosage: (THREE CAPSULES OF 100MG IN THE MORNING AND TWO CAPSULES OF 100MG IN THE EVENING)
     Route: 048
     Dates: start: 20120501
  3. DILANTIN [Suspect]
     Indication: CONVULSION
     Dosage: THREE CAPSULES OF 100MG AND TWO CAPSULE OF 100MG DAILY
     Route: 048
     Dates: start: 20090101, end: 20090101
  4. DILANTIN [Suspect]
     Dosage: (THREE CAPSULES OF 100MG IN THE MORNING AND TWO CAPSULE OF 100MG IN THE EVENING)
     Route: 048
     Dates: end: 20120101
  5. PRIMIDONE [Concomitant]
     Indication: CONVULSION
     Dosage: 250 MG, 2X/DAY
  6. DILANTIN [Suspect]
     Dosage: (THREE CAPSULES OF 100MG IN THE MORNING AND TWO CAPSULE OF 100MG IN THE EVENING)
     Route: 048
     Dates: start: 20120401, end: 20120501

REACTIONS (10)
  - CONSTIPATION [None]
  - MALAISE [None]
  - SOMNOLENCE [None]
  - DRUG INEFFECTIVE [None]
  - SWOLLEN TONGUE [None]
  - TONGUE DISORDER [None]
  - FEELING ABNORMAL [None]
  - VISION BLURRED [None]
  - DYSARTHRIA [None]
  - BALANCE DISORDER [None]
